FAERS Safety Report 8620244-2 (Version None)
Quarter: 2012Q3

REPORT INFORMATION
  Report Type: 
  Country: None (occurrence: None)
  Receive Date: 20120824
  Receipt Date: 20120823
  Transmission Date: 20120928
  Serious: Yes (Hospitalization)
  Sender: FDA-Public Use
  Company Number: IT-BAYER-2012-087060

PATIENT
  Age: 80 Year
  Sex: Female

DRUGS (7)
  1. ASPIRIN [Suspect]
     Indication: CARDIOMYOPATHY
     Dosage: 100 MG, QD
     Route: 048
     Dates: start: 20120616, end: 20120709
  2. FOLINA [Concomitant]
  3. PANTOPRAZOLE [Concomitant]
  4. LOSARTAN POTASSIUM [Suspect]
     Indication: HYPERTENSION
     Dosage: DAILY DOSE 25 MG
     Route: 048
     Dates: start: 20120616, end: 20120709
  5. METFORMIN HCL [Concomitant]
  6. ALLOPURINOL [Suspect]
     Indication: HYPERURICAEMIA
     Dosage: DAILY DOSE 150 MG
     Route: 048
     Dates: start: 20120616, end: 20120709
  7. LASIX [Concomitant]

REACTIONS (4)
  - KOUNIS SYNDROME [None]
  - ACUTE CORONARY SYNDROME [None]
  - DRUG HYPERSENSITIVITY [None]
  - ERYTHEMA MULTIFORME [None]
